FAERS Safety Report 7644594-1 (Version None)
Quarter: 2011Q3

REPORT INFORMATION
  Report Type: 
  Country: None (occurrence: None)
  Receive Date: 20110729
  Receipt Date: 20110725
  Transmission Date: 20111222
  Serious: Yes (Death)
  Sender: FDA-Public Use
  Company Number: FR-PFIZER INC-2011168201

PATIENT
  Age: 78 Year
  Sex: Female

DRUGS (12)
  1. AZACTAM [Suspect]
     Indication: GROIN ABSCESS
     Dosage: 1 G, 1X/DAY
     Route: 040
     Dates: start: 20110324, end: 20110417
  2. NOVOMIX [Concomitant]
  3. LASIX [Concomitant]
  4. ASPIRIN [Concomitant]
  5. EFFIENT [Concomitant]
  6. ATORVASTATIN CALCIUM [Concomitant]
  7. ALLOPURINOL [Concomitant]
  8. RAMIPRIL [Concomitant]
  9. NEBIVOLOL [Concomitant]
  10. ZYVOX [Suspect]
     Indication: GROIN ABSCESS
     Dosage: 600 MG, 2X/DAY
     Route: 048
     Dates: start: 20110324, end: 20110415
  11. IRBESARTAN [Concomitant]
  12. EUPRESSYL [Concomitant]

REACTIONS (3)
  - CONFUSIONAL STATE [None]
  - HALLUCINATION [None]
  - DELIRIUM [None]
